FAERS Safety Report 7679690-6 (Version None)
Quarter: 2011Q3

REPORT INFORMATION
  Report Type: 
  Country: None (occurrence: None)
  Receive Date: 20110812
  Receipt Date: 20110804
  Transmission Date: 20111222
  Serious: Yes (Hospitalization)
  Sender: FDA-Public Use
  Company Number: JP-PFIZER INC-2011162645

PATIENT
  Age: 70 Year
  Sex: Female
  Weight: 38 kg

DRUGS (5)
  1. ZOLOFT [Suspect]
     Indication: DEPRESSION
     Dosage: 25 MG, 1X/DAY
     Route: 048
     Dates: start: 20110715, end: 20110716
  2. LOXONIN [Concomitant]
     Dosage: 60 MG, 3X/DAY
     Route: 048
  3. RABEPRAZOLE SODIUM [Concomitant]
     Indication: GASTROOESOPHAGEAL REFLUX DISEASE
     Dosage: 10 MG, 1X/DAY
     Route: 048
     Dates: start: 20080401
  4. PL GRAN. [Concomitant]
     Indication: UPPER RESPIRATORY TRACT INFLAMMATION
     Dosage: 1 G, 3X/DAY
     Route: 048
     Dates: start: 20110714, end: 20110716
  5. ESTRIOL [Concomitant]
     Indication: UTERINE CANCER
     Dosage: 1 MG, 1X/DAY
     Route: 048

REACTIONS (1)
  - NEUROLEPTIC MALIGNANT SYNDROME [None]
